FAERS Safety Report 6979409-8 (Version None)
Quarter: 2010Q3

REPORT INFORMATION
  Report Type: 
  Country: None (occurrence: None)
  Receive Date: 20100910
  Receipt Date: 20100910
  Transmission Date: 20110219
  Serious: No
  Sender: FDA-Public Use
  Company Number: None

PATIENT
  Age: 12 Year
  Sex: Male

DRUGS (2)
  1. ZITHROMAX [Suspect]
     Indication: INFECTION
     Dosage: ORALLY
     Route: 048
     Dates: start: 20100901
  2. ZITHROMAX [Suspect]
     Indication: INFECTION
     Dosage: ORALLY
     Route: 048
     Dates: start: 20100902

REACTIONS (3)
  - NO THERAPEUTIC RESPONSE [None]
  - PRURITUS [None]
  - URTICARIA [None]
